FAERS Safety Report 8662239 (Version 3)
Quarter: 2013Q3

REPORT INFORMATION
  Report Type: Spontaneous
  Country: US (occurrence: None)
  Receive Date: 20120627
  Receipt Date: 20130806
  Transmission Date: 20140515
  Serious: Yes (Hospitalization, Other)
  Sender: FDA-Public Use
  Company Number: DSU-2012-04864

PATIENT
  Age: 69 Year
  Sex: Female
  Weight: 61.24 kg

DRUGS (8)
  1. BENICAR [Suspect]
     Indication: HYPERTENSION
     Route: 048
     Dates: end: 20120513
  2. DEXLANSOPRAZOLE [Suspect]
     Indication: ABDOMINAL PAIN UPPER
     Dosage: UNKNOWN (ONCE)
     Dates: start: 20120325, end: 20120325
  3. UNSPECIFIED INGREDIENTS [Suspect]
     Indication: DIARRHOEA
     Dates: start: 2012, end: 201210
  4. CLOBETASOL PROPIONATE (CLOBETASOL PROPIONATE) (CLOBETASOL PROPIONATE) [Concomitant]
  5. ELIDEL [Concomitant]
  6. FLUTICASONE PROPIONATE (FLUTICASONE PROPIONATE) (FLUTICASONE PROPIONATE) [Concomitant]
  7. ZITHROMAX (AZITHROMYCIN) (AZITHROMYCIN) [Concomitant]
  8. LIPITOR (ATORVASTATIN CALCIUM) (ATORVASTATIN CALCIUM) [Concomitant]

REACTIONS (26)
  - Malabsorption [None]
  - Steatorrhoea [None]
  - Intestinal mucosal atrophy [None]
  - Blood pressure decreased [None]
  - Blood pressure increased [None]
  - Duodenitis haemorrhagic [None]
  - Gastric ulcer haemorrhage [None]
  - Duodenal ulcer [None]
  - Faecal incontinence [None]
  - Weight decreased [None]
  - Hypophagia [None]
  - Gastroenteritis [None]
  - Abdominal lymphadenopathy [None]
  - Hepatic lesion [None]
  - Hepatic cyst [None]
  - Large intestine polyp [None]
  - Fatigue [None]
  - Night sweats [None]
  - Palpitations [None]
  - Depression [None]
  - Middle insomnia [None]
  - Hepatitis [None]
  - Alanine aminotransferase increased [None]
  - Aspartate aminotransferase increased [None]
  - Diarrhoea [None]
  - Hypotension [None]
